FAERS Safety Report 5902158-1 (Version None)
Quarter: 2008Q3

REPORT INFORMATION
  Report Type: 
  Country: None (occurrence: None)
  Receive Date: 20080929
  Receipt Date: 20080918
  Transmission Date: 20090109
  Serious: Yes (Death)
  Sender: FDA-Public Use
  Company Number: US-PFIZER INC-2008078931

PATIENT

DRUGS (1)
  1. GEODON [Suspect]

REACTIONS (1)
  - DEATH [None]
